FAERS Safety Report 25267071 (Version 1)
Quarter: 2025Q2

REPORT INFORMATION
  Report Type: Spontaneous
  Country: US (occurrence: None)
  Receive Date: 20250505
  Receipt Date: 20250505
  Transmission Date: 20250717
  Serious: Yes (Hospitalization, Other)
  Sender: NATCO PHARMA
  Company Number: US-NATCOUSA-2025-NATCOUSA-000285

PATIENT
  Age: 17 Year
  Sex: Female

DRUGS (1)
  1. IMATINIB [Suspect]
     Active Substance: IMATINIB
     Indication: Chronic myeloid leukaemia
     Route: 065

REACTIONS (5)
  - Foot fracture [Recovering/Resolving]
  - Osteonecrosis [Unknown]
  - Bone marrow oedema [Recovering/Resolving]
  - Spondylolysis [Recovering/Resolving]
  - Atypical femur fracture [Unknown]
